FAERS Safety Report 15682908 (Version 1)
Quarter: 2018Q4

REPORT INFORMATION
  Report Type: Spontaneous
  Country: US (occurrence: US)
  Receive Date: 20181203
  Receipt Date: 20181203
  Transmission Date: 20190205
  Serious: No
  Sender: FDA-Public Use
  Company Number: US-BAYER-2018-221272

PATIENT
  Age: 70 Year

DRUGS (1)
  1. MIRALAX [Suspect]
     Active Substance: POLYETHYLENE GLYCOL 3350
     Indication: ABDOMINAL PAIN UPPER
     Dosage: 17 G DOSE IN YOGURT OR PUDDING
     Route: 048

REACTIONS (2)
  - Dysphagia [Unknown]
  - Product prescribing error [Unknown]
